FAERS Safety Report 8553032-6 (Version None)
Quarter: 2012Q3

REPORT INFORMATION
  Report Type: 
  Country: None (occurrence: None)
  Receive Date: 20120731
  Receipt Date: 20120723
  Transmission Date: 20120928
  Serious: Yes (Hospitalization)
  Sender: FDA-Public Use
  Company Number: JP-VERTEX PHARMACEUTICALS INC.-AE-2012-004557

PATIENT
  Age: 65 Year
  Sex: Female

DRUGS (17)
  1. RIBAVIRIN [Concomitant]
     Indication: HEPATITIS C
     Route: 048
     Dates: start: 20120126, end: 20120208
  2. URSO 250 [Concomitant]
     Route: 048
     Dates: start: 20120416
  3. TELAVIC (TELAPREVIR) [Suspect]
     Route: 048
     Dates: start: 20120221, end: 20120307
  4. DIOVAN [Concomitant]
     Route: 048
  5. PEGINTERFERON ALFA-2A [Concomitant]
     Indication: HEPATITIS C
     Route: 058
     Dates: start: 20120126, end: 20120209
  6. PEGINTERFERON ALFA-2A [Concomitant]
     Route: 058
     Dates: start: 20120223, end: 20120301
  7. VALSARTAN  AND HYDROCHLOROTHIAZIDE [Concomitant]
     Route: 048
  8. FAMOTIDINE [Concomitant]
     Route: 048
  9. NIFEDIPINE [Concomitant]
     Route: 048
  10. PROHEPARUM [Concomitant]
     Route: 048
     Dates: start: 20120416
  11. TELAVIC (TELAPREVIR) [Suspect]
     Indication: HEPATITIS C
     Route: 048
     Dates: start: 20120126, end: 20120214
  12. RIBAVIRIN [Concomitant]
     Route: 048
     Dates: start: 20120209, end: 20120307
  13. LOXOPROFEN [Concomitant]
     Route: 048
     Dates: start: 20120126
  14. JUZENTAIHOTO [Concomitant]
     Route: 048
     Dates: start: 20120711
  15. REBAMIPIDE [Concomitant]
     Route: 048
     Dates: start: 20120126
  16. PRIMPERAN TAB [Concomitant]
     Route: 048
     Dates: start: 20120128
  17. GLYCYRON [Concomitant]
     Route: 048
     Dates: start: 20120416

REACTIONS (3)
  - DIZZINESS [None]
  - DECREASED APPETITE [None]
  - DEAFNESS [None]
